FAERS Safety Report 8060595-6 (Version None)
Quarter: 2012Q1

REPORT INFORMATION
  Report Type: 
  Country: None (occurrence: None)
  Receive Date: 20120120
  Receipt Date: 20120109
  Transmission Date: 20120608
  Serious: Yes (Hospitalization)
  Sender: FDA-Public Use
  Company Number: 2011SP000603

PATIENT
  Age: 71 Year
  Sex: Male
  Weight: 125 kg

DRUGS (17)
  1. ASPIRIN [Concomitant]
     Indication: CARDIOVASCULAR EVENT PROPHYLAXIS
     Route: 048
     Dates: start: 20030101
  2. PROSCAR [Concomitant]
     Indication: PROSTATOMEGALY
     Route: 048
     Dates: start: 20040101
  3. DIOVAN [Concomitant]
     Indication: HYPERTENSION
     Route: 048
     Dates: start: 20030101
  4. TYLENOL W/ CODEINE NO. 3 [Concomitant]
     Indication: PAIN
     Route: 048
     Dates: start: 20100101
  5. ARFORMOTEROL TARTRATE [Suspect]
     Indication: CHRONIC OBSTRUCTIVE PULMONARY DISEASE
     Dosage: DOSE UNIT:15
     Route: 055
     Dates: start: 20101109, end: 20110210
  6. BUMETANIDE [Concomitant]
     Indication: FLUID RETENTION
     Route: 048
     Dates: start: 20100101
  7. METAMUCIL                          /00029101/ [Concomitant]
     Indication: NASAL DISORDER
     Route: 045
     Dates: start: 20040101
  8. COREG [Concomitant]
     Indication: HYPERTENSION
     Route: 048
     Dates: start: 20100101
  9. PLAVIX [Concomitant]
     Indication: CARDIOVASCULAR EVENT PROPHYLAXIS
     Route: 048
     Dates: start: 20030101
  10. ZYRTEC [Concomitant]
     Indication: SEASONAL ALLERGY
     Route: 048
     Dates: start: 20070101
  11. PROZAC [Concomitant]
     Indication: DEPRESSION
     Route: 048
     Dates: start: 20070101
  12. NOVOLIN                            /00030501/ [Concomitant]
     Indication: DIABETES MELLITUS
     Route: 030
     Dates: start: 20000101
  13. ZOCOR [Concomitant]
     Indication: BLOOD CHOLESTEROL INCREASED
     Route: 048
     Dates: start: 20040101
  14. PROVENTIL                          /00139501/ [Concomitant]
     Indication: CHRONIC OBSTRUCTIVE PULMONARY DISEASE
     Route: 055
     Dates: start: 20100819
  15. ISOSORBIDE DINITRATE [Concomitant]
     Indication: CARDIOVASCULAR EVENT PROPHYLAXIS
     Route: 048
     Dates: start: 20100101
  16. PROTONIX [Concomitant]
     Indication: GASTROOESOPHAGEAL REFLUX DISEASE
     Route: 048
     Dates: start: 20100101
  17. MELOXICAM [Concomitant]
     Indication: MUSCLE SPASMS
     Route: 048
     Dates: start: 20100101

REACTIONS (2)
  - INTESTINAL PERFORATION [None]
  - CHRONIC OBSTRUCTIVE PULMONARY DISEASE [None]
